FAERS Safety Report 17710941 (Version 7)
Quarter: 2020Q4

REPORT INFORMATION
  Report Type: Spontaneous
  Country: US (occurrence: US)
  Receive Date: 20200427
  Receipt Date: 20201120
  Transmission Date: 20210113
  Serious: No
  Sender: FDA-Public Use
  Company Number: US-PFIZER INC-2020164081

PATIENT
  Age: 71 Year
  Sex: Female
  Weight: 107 kg

DRUGS (1)
  1. XELJANZ XR [Suspect]
     Active Substance: TOFACITINIB CITRATE
     Indication: RHEUMATOID ARTHRITIS
     Dosage: 11 MG
     Dates: end: 202005

REACTIONS (6)
  - Therapeutic product effect incomplete [Unknown]
  - Hypertension [Unknown]
  - Illness [Unknown]
  - Arthropod bite [Unknown]
  - Condition aggravated [Unknown]
  - Peripheral swelling [Unknown]
